FAERS Safety Report 24271638 (Version 1)
Quarter: 2024Q3

REPORT INFORMATION
  Report Type: Spontaneous
  Country: PK (occurrence: PK)
  Receive Date: 20240902
  Receipt Date: 20240902
  Transmission Date: 20241017
  Serious: Yes (Life-Threatening, Hospitalization)
  Sender: STRIDES
  Company Number: None

PATIENT
  Age: 29 Year
  Sex: Female

DRUGS (2)
  1. PREDNISOLONE [Suspect]
     Active Substance: PREDNISOLONE
     Indication: Product used for unknown indication
     Dosage: RESPECTIVELY TWO WEEKS APART
     Route: 065
     Dates: start: 202203
  2. PREDNISOLONE [Suspect]
     Active Substance: PREDNISOLONE
     Dosage: RESPECTIVELY TWO WEEKS APART
     Route: 065
     Dates: start: 202203

REACTIONS (3)
  - Pulmonary mass [Recovered/Resolved]
  - Bronchopulmonary aspergillosis [Recovered/Resolved]
  - Disseminated aspergillosis [Recovered/Resolved]

NARRATIVE: CASE EVENT DATE: 20220301
